FAERS Safety Report 7058252-8 (Version None)
Quarter: 2010Q4

REPORT INFORMATION
  Report Type: 
  Country: None (occurrence: None)
  Receive Date: 20101022
  Receipt Date: 20101020
  Transmission Date: 20110411
  Serious: No
  Sender: FDA-Public Use
  Company Number: US-PFIZER INC-2010071121

PATIENT
  Sex: Female
  Weight: 95 kg

DRUGS (12)
  1. CHANTIX [Suspect]
     Indication: SMOKING CESSATION THERAPY
     Dosage: UNK
     Dates: start: 20100103
  2. CHANTIX [Suspect]
     Dosage: 1 MG, 2X/DAY
     Dates: start: 20100203
  3. NITROGLYCERIN [Concomitant]
     Dosage: 0.9 MG, 2X/DAY
  4. NORVASC [Concomitant]
     Dosage: 5 MG, DAILY
     Route: 048
  5. PRILOSEC [Concomitant]
     Dosage: 20 MG, DAILY
     Route: 048
  6. PAXIL [Concomitant]
     Dosage: 20 MG, DAILY
     Route: 048
  7. ATENOLOL [Concomitant]
     Dosage: 25 MG, DAILY
  8. BUPROPION [Concomitant]
     Dosage: 75 MG, DAILY
  9. LASIX [Concomitant]
     Dosage: 40 MG, DAILY
     Route: 048
  10. VYTORIN [Concomitant]
     Dosage: EZETIMIBE 10, SIMVASTATIN 80, DAILY
     Route: 048
  11. XANAX [Concomitant]
     Dosage: 1 MG, DAILY
  12. ACETAMINOPHEN W/ CODEINE [Concomitant]
     Dosage: UNK
     Route: 048

REACTIONS (3)
  - APPETITE DISORDER [None]
  - NIGHTMARE [None]
  - STRESS [None]
